FAERS Safety Report 6905778-0 (Version None)
Quarter: 2010Q3

REPORT INFORMATION
  Report Type: 
  Country: None (occurrence: None)
  Receive Date: 20100804
  Receipt Date: 20091123
  Transmission Date: 20110219
  Serious: Yes (Other)
  Sender: FDA-Public Use
  Company Number: US-PFIZER INC-2009211969

PATIENT
  Sex: Female
  Weight: 70.295 kg

DRUGS (6)
  1. LYRICA [Suspect]
     Indication: NEUROPATHY PERIPHERAL
     Dosage: UNK
     Dates: end: 20090101
  2. LYRICA [Suspect]
     Indication: FIBROMYALGIA
  3. HYDROCODONE [Concomitant]
     Dosage: UNK
  4. CLOBETASOL [Concomitant]
     Dosage: UNK
  5. EFFEXOR [Concomitant]
     Dosage: UNK
  6. LORAZEPAM [Concomitant]
     Dosage: UNK

REACTIONS (23)
  - AGITATION [None]
  - AMNESIA [None]
  - ASPARTATE AMINOTRANSFERASE INCREASED [None]
  - BALANCE DISORDER [None]
  - BLISTER [None]
  - BLOOD CHOLESTEROL INCREASED [None]
  - BLOOD TRIGLYCERIDES INCREASED [None]
  - CONFUSIONAL STATE [None]
  - DEPRESSION [None]
  - DISTURBANCE IN ATTENTION [None]
  - DIZZINESS [None]
  - EYE IRRITATION [None]
  - GAIT DISTURBANCE [None]
  - HALLUCINATION [None]
  - INCREASED APPETITE [None]
  - INSOMNIA [None]
  - NEOPLASM [None]
  - RASH PAPULAR [None]
  - SOMNOLENCE [None]
  - STRESS [None]
  - SUICIDAL IDEATION [None]
  - TINNITUS [None]
  - WEIGHT INCREASED [None]
